FAERS Safety Report 20442930 (Version 1)
Quarter: 2022Q1

REPORT INFORMATION
  Report Type: Spontaneous
  Country: US (occurrence: US)
  Receive Date: 20220208
  Receipt Date: 20220208
  Transmission Date: 20220423
  Serious: No
  Sender: FDA-Public Use
  Company Number: US-NOVARTISTESTPH-NVSC2022US026848

PATIENT
  Sex: Female
  Weight: 83.91 kg

DRUGS (2)
  1. LETROZOLE [Suspect]
     Active Substance: LETROZOLE
     Indication: Product used for unknown indication
     Dosage: UNK
     Route: 065
  2. IBRANCE [Suspect]
     Active Substance: PALBOCICLIB
     Indication: Breast cancer metastatic
     Dosage: 100 MG, QD (100MG ONCE DAILY FOR 21 DAYS AND THEN OFF FOR 1 WEEK.)
     Route: 065
     Dates: start: 2016

REACTIONS (2)
  - Cough [Unknown]
  - Drug ineffective [Unknown]
